FAERS Safety Report 23548728 (Version 1)
Quarter: 2024Q1

REPORT INFORMATION
  Report Type: Spontaneous
  Country: US (occurrence: None)
  Receive Date: 20240219
  Receipt Date: 20240219
  Transmission Date: 20240410
  Serious: Yes (Life-Threatening)
  Sender: FDA-Public Use
  Company Number: None

PATIENT
  Age: 91 Year
  Sex: Female

DRUGS (1)
  1. REXULTI [Suspect]
     Active Substance: BREXPIPRAZOLE
     Dosage: FREQUENCY : DAILY;?
     Route: 048
     Dates: start: 20230920, end: 20240128

REACTIONS (3)
  - Fall [None]
  - Cerebral haemorrhage [None]
  - Somnolence [None]
